FAERS Safety Report 8415317-3 (Version None)
Quarter: 2012Q2

REPORT INFORMATION
  Report Type: 
  Country: None (occurrence: None)
  Receive Date: 20120323
  Receipt Date: 20111206
  Transmission Date: 20120825
  Serious: Yes (Hospitalization)
  Sender: FDA-Public Use
  Company Number: 163-21880-11120986

PATIENT
  Age: 80 Year
  Sex: Female

DRUGS (11)
  1. OXYCONTIN [Concomitant]
  2. DARVOCET A500 (PROPACET) (UNKNOWN) [Concomitant]
  3. VITAMIN D (ERGOCALCIFEROL) (UNKNOWN) [Concomitant]
  4. CRANBERRY EXTRACT (UNKNOWN) [Concomitant]
  5. DEXAMETHASONE [Concomitant]
  6. REVLIMID [Suspect]
     Indication: MULTIPLE MYELOMA
     Dosage: 10 MG, DAILY X 21 DAYS, PO
     Route: 048
     Dates: start: 20080505
  7. CALTRATE 600 (CALCIUM CARBONATE) (UNKNOWN) [Concomitant]
  8. MACRODANTIN [Concomitant]
  9. ASPIRIN [Concomitant]
  10. POTASSIUM CHLORIDE [Concomitant]
  11. AREDIA [Concomitant]

REACTIONS (1)
  - VOMITING [None]
